FAERS Safety Report 7677104 (Version 2)
Quarter: 2013Q3

REPORT INFORMATION
  Report Type: Spontaneous
  Country: TR (occurrence: None)
  Receive Date: 20101027
  Receipt Date: 20130709
  Transmission Date: 20140515
  Serious: Yes (Hospitalization)
  Sender: FDA-Public Use
  Company Number: AUR-APU-2010-02599

PATIENT
  Age: 60 Year
  Sex: Female

DRUGS (1)
  1. CEFUROXIME [Suspect]
     Indication: UPPER RESPIRATORY TRACT INFECTION
     Dosage: 500MG - BID - ORAL
     Route: 048

REACTIONS (5)
  - Hepatic failure [None]
  - International normalised ratio increased [None]
  - Liver transplant [None]
  - Hepatotoxicity [None]
  - Ischaemic hepatitis [None]
